FAERS Safety Report 6374053-8 (Version None)
Quarter: 2009Q3

REPORT INFORMATION
  Report Type: 
  Country: None (occurrence: None)
  Receive Date: 20090924
  Receipt Date: 20090714
  Transmission Date: 20100115
  Serious: Yes (Other)
  Sender: FDA-Public Use
  Company Number: US-ASTRAZENECA-2009UW19756

PATIENT
  Age: 19 Year
  Sex: Female

DRUGS (2)
  1. SEROQUEL XR [Suspect]
     Indication: BIPOLAR I DISORDER
     Route: 048
  2. NOVOCAINE [Interacting]
     Indication: TOOTH EXTRACTION

REACTIONS (2)
  - DRUG INTERACTION [None]
  - SYNCOPE [None]
